FAERS Safety Report 7013136-6 (Version None)
Quarter: 2010Q3

REPORT INFORMATION
  Report Type: 
  Country: None (occurrence: None)
  Receive Date: 20100924
  Receipt Date: 20100825
  Transmission Date: 20110219
  Serious: No
  Sender: FDA-Public Use
  Company Number: DE-SOLVAY-00310001910

PATIENT
  Age: 57 Year
  Sex: Male

DRUGS (1)
  1. TESTOSTERONE [Suspect]
     Indication: HYPOGONADISM
     Dosage: DAILY DOSE:  UNKNOWN
     Route: 062
     Dates: start: 20090830, end: 20091229

REACTIONS (1)
  - DRUG INEFFECTIVE [None]
